FAERS Safety Report 5708979-2 (Version None)
Quarter: 2008Q2

REPORT INFORMATION
  Report Type: 
  Country: None (occurrence: None)
  Receive Date: 20080414
  Receipt Date: 20080414
  Transmission Date: 20081010
  Serious: Yes (Death)
  Sender: FDA-Public Use
  Company Number: None

PATIENT
  Sex: Male
  Weight: 90.7194 kg

DRUGS (2)
  1. METHADONE HCL [Suspect]
     Indication: BACK PAIN
     Dosage: 1 PILL 4 TIMES A DAY PO
     Route: 048
     Dates: start: 20070907, end: 20070908
  2. METHADONE HCL [Suspect]
     Indication: NECK PAIN
     Dosage: 1 PILL 4 TIMES A DAY PO
     Route: 048
     Dates: start: 20070907, end: 20070908

REACTIONS (1)
  - DEATH [None]
